FAERS Safety Report 14089189 (Version 2)
Quarter: 2017Q4

REPORT INFORMATION
  Report Type: Report from Study
  Country: None (occurrence: US)
  Receive Date: 20171014
  Receipt Date: 20171024
  Transmission Date: 20180321
  Serious: Yes (Hospitalization)
  Sender: FDA-Public Use
  Company Number: US-ABBVIE-17K-163-2096671-00

PATIENT
  Sex: Female

DRUGS (3)
  1. HUMIRA [Suspect]
     Active Substance: ADALIMUMAB
     Route: 058
     Dates: start: 2017, end: 2017
  2. PROLIA [Suspect]
     Active Substance: DENOSUMAB
     Indication: OSTEOPOROSIS
     Route: 065
     Dates: start: 201707
  3. HUMIRA [Suspect]
     Active Substance: ADALIMUMAB
     Indication: PSORIATIC ARTHROPATHY
     Route: 058
     Dates: end: 201707

REACTIONS (7)
  - Malaise [Recovered/Resolved]
  - Weight decreased [Unknown]
  - Gastritis [Unknown]
  - Decreased appetite [Unknown]
  - Colitis [Unknown]
  - Immune system disorder [Unknown]
  - Osteoporosis [Unknown]

NARRATIVE: CASE EVENT DATE: 2017
